FAERS Safety Report 4445513-1 (Version None)
Quarter: 2004Q3

REPORT INFORMATION
  Report Type: 
  Country: None (occurrence: None)
  Receive Date: 20040804
  Receipt Date: 20040420
  Transmission Date: 20050211
  Serious: Yes (Other)
  Sender: FDA-Public Use
  Company Number: 2004-112966-NL

PATIENT
  Age: 22 Year
  Sex: Female
  Weight: 64 kg

DRUGS (5)
  1. REMERON [Suspect]
     Indication: DEPRESSION
     Dosage: 30 MG QD ORAL
     Route: 048
     Dates: start: 20040117, end: 20040203
  2. SERTRALINE HCL [Suspect]
     Indication: DEPRESSION
     Dosage: 200 MG DAILY ORAL
     Route: 048
     Dates: start: 20030401, end: 20040202
  3. SERTRALINE HCL [Suspect]
     Indication: DEPRESSION
     Dosage: 150 MG DAILY ORAL
     Route: 048
     Dates: start: 20040203
  4. PEG-INTRON [Suspect]
     Indication: HEPATITIS C
     Dosage: 100 UG WEEKLY SUBCUTANEOUS
     Route: 058
     Dates: start: 20031128
  5. RIBAVIRIN [Suspect]
     Indication: HEPATITIS C
     Dosage: 1000 MG QD ORAL
     Route: 048
     Dates: start: 20031128

REACTIONS (1)
  - GRAND MAL CONVULSION [None]
